FAERS Safety Report 5689548-X (Version None)
Quarter: 2008Q1

REPORT INFORMATION
  Report Type: 
  Country: None (occurrence: None)
  Receive Date: 20080331
  Receipt Date: 20080324
  Transmission Date: 20080703
  Serious: Yes (Other)
  Sender: FDA-Public Use
  Company Number: GB-PFIZER INC-2008026897

PATIENT
  Age: 36 Year
  Sex: Male
  Weight: 84 kg

DRUGS (3)
  1. CHAMPIX [Suspect]
     Indication: SMOKING CESSATION THERAPY
     Route: 048
     Dates: start: 20080207, end: 20080302
  2. NICOTINE [Concomitant]
  3. SERETIDE [Concomitant]
     Indication: ASTHMA
     Route: 055

REACTIONS (3)
  - DIZZINESS [None]
  - HEAD DISCOMFORT [None]
  - IRRITABILITY [None]
